FAERS Safety Report 6027620-5 (Version None)
Quarter: 2009Q1

REPORT INFORMATION
  Report Type: 
  Country: None (occurrence: None)
  Receive Date: 20090105
  Receipt Date: 20081223
  Transmission Date: 20090719
  Serious: Yes (Hospitalization)
  Sender: FDA-Public Use
  Company Number: US-ROCHE-604872

PATIENT
  Sex: Male

DRUGS (16)
  1. MYCOPHENOLATE MOFETIL [Suspect]
     Indication: LIVER TRANSPLANT
     Route: 048
     Dates: start: 20081112
  2. BELATACEPT [Suspect]
     Indication: LIVER TRANSPLANT
     Route: 042
     Dates: start: 20081111
  3. BLINDED BASILIXIMAB [Suspect]
     Indication: LIVER TRANSPLANT
     Route: 042
     Dates: start: 20081111, end: 20081115
  4. UNASYN [Suspect]
     Indication: DRUG USE FOR UNKNOWN INDICATION
     Route: 042
  5. SEPTRA [Suspect]
     Indication: DRUG USE FOR UNKNOWN INDICATION
     Route: 065
  6. GANCICLOVIR [Concomitant]
     Dates: start: 20081112
  7. CYTOGAM [Concomitant]
  8. PREDNISONE TAB [Concomitant]
     Dates: start: 20081116, end: 20081206
  9. VALCYTE [Concomitant]
     Dates: start: 20081112, end: 20081205
  10. NEXIUM [Concomitant]
     Dates: start: 20050706
  11. ATIVAN [Concomitant]
     Dates: start: 20050706
  12. AMBIEN [Concomitant]
     Dates: start: 20050706
  13. ASPIRIN [Concomitant]
     Dates: start: 20081114, end: 20081201
  14. NYSTATIN [Concomitant]
     Dates: start: 20081112
  15. SYNTHROID [Concomitant]
     Dates: start: 20081110
  16. PERCOCET [Concomitant]
     Dates: start: 20081202

REACTIONS (5)
  - PERITONEAL EFFUSION [None]
  - PLATELET COUNT DECREASED [None]
  - PLEURAL EFFUSION [None]
  - PYREXIA [None]
  - TOXIC EPIDERMAL NECROLYSIS [None]
